FAERS Safety Report 9373632 (Version 2)
Quarter: 2013Q3

REPORT INFORMATION
  Report Type: Spontaneous
  Country: JP (occurrence: JP)
  Receive Date: 20130627
  Receipt Date: 20130710
  Transmission Date: 20140515
  Serious: Yes (Other)
  Sender: FDA-Public Use
  Company Number: JP-B.I. PHARMACEUTICALS,INC./RIDGEFIELD-2013-BI-18086NB

PATIENT
  Age: 68 Year
  Sex: Male

DRUGS (5)
  1. PRAZAXA [Suspect]
     Indication: ATRIAL FIBRILLATION
     Dosage: 220 MG
     Route: 048
     Dates: start: 20130620
  2. CRAVIT [Suspect]
     Indication: CYSTITIS
     Route: 048
     Dates: start: 20130530
  3. MICARDIS [Concomitant]
     Indication: HYPERTENSION
     Dosage: 40 MG
     Route: 048
  4. AMLODIPINE [Concomitant]
     Indication: HYPERTENSION
     Dosage: 5 MG
     Route: 048
  5. GABAPEN [Concomitant]
     Indication: CONVULSION
     Dosage: 6 MG
     Route: 048
     Dates: start: 20130612

REACTIONS (1)
  - Convulsion [Recovered/Resolved]
